FAERS Safety Report 16956088 (Version 1)
Quarter: 2019Q4

REPORT INFORMATION
  Report Type: Spontaneous
  Country: DK (occurrence: DK)
  Receive Date: 20191024
  Receipt Date: 20191024
  Transmission Date: 20200122
  Serious: Yes (Hospitalization, Other)
  Sender: FDA-Public Use
  Company Number: DK-ACCORD-158732

PATIENT
  Age: 28 Year
  Sex: Female

DRUGS (3)
  1. QUETIAPINE. [Suspect]
     Active Substance: QUETIAPINE
     Indication: PRODUCT USED FOR UNKNOWN INDICATION
  2. PREDNISOLONE. [Suspect]
     Active Substance: PREDNISOLONE
     Indication: DYSPNOEA
  3. LAMOTRIGINE. [Suspect]
     Active Substance: LAMOTRIGINE
     Indication: SCHIZOPHRENIA

REACTIONS (8)
  - Respiratory gas exchange disorder [Unknown]
  - Interstitial lung disease [Unknown]
  - Chest X-ray abnormal [Unknown]
  - Pulmonary embolism [Unknown]
  - Lymphadenitis [Unknown]
  - Dyspnoea [Unknown]
  - Pneumonitis [Recovered/Resolved]
  - Forced vital capacity decreased [Unknown]
